FAERS Safety Report 22124292 (Version 1)
Quarter: 2023Q1

REPORT INFORMATION
  Report Type: Spontaneous
  Country: US (occurrence: None)
  Receive Date: 20230321
  Receipt Date: 20230321
  Transmission Date: 20230417
  Serious: Yes (Hospitalization)
  Sender: FDA-Public Use
  Company Number: None

PATIENT
  Age: 30 Year
  Sex: Female
  Weight: 59 kg

DRUGS (1)
  1. JUNEL FE 1/20 [Suspect]
     Active Substance: ETHINYL ESTRADIOL\NORETHINDRONE ACETATE
     Dosage: OTHER STRENGTH : 1 MG-20 MCG (21);?FREQUENCY : DAILY;?
     Route: 048

REACTIONS (8)
  - Fall [None]
  - Foot fracture [None]
  - Lower limb fracture [None]
  - Musculoskeletal chest pain [None]
  - Back pain [None]
  - Pain [None]
  - Pulmonary embolism [None]
  - Deep vein thrombosis [None]

NARRATIVE: CASE EVENT DATE: 20230225
